FAERS Safety Report 4731781-5 (Version None)
Quarter: 2005Q3

REPORT INFORMATION
  Report Type: 
  Country: None (occurrence: None)
  Receive Date: 20050719
  Receipt Date: 20050126
  Transmission Date: 20060218
  Serious: Yes (Hospitalization)
  Sender: FDA-Public Use
  Company Number: 2005BI002072

PATIENT
  Age: 26 Year
  Sex: Female

DRUGS (1)
  1. AVONEX [Suspect]
     Indication: MULTIPLE SCLEROSIS
     Dosage: 30 UG;QW;IM
     Route: 030
     Dates: start: 19961019, end: 19970701

REACTIONS (5)
  - ATROPHY [None]
  - INFLUENZA LIKE ILLNESS [None]
  - LETHARGY [None]
  - MULTIPLE SCLEROSIS RELAPSE [None]
  - OESOPHAGEAL SPASM [None]
